FAERS Safety Report 20849944 (Version 6)
Quarter: 2022Q3

REPORT INFORMATION
  Report Type: Report from Study
  Country: US (occurrence: US)
  Receive Date: 20220519
  Receipt Date: 20220922
  Transmission Date: 20221027
  Serious: No
  Sender: FDA-Public Use
  Company Number: US-NOVARTISTESTPH-NVSC2022US114604

PATIENT
  Sex: Male

DRUGS (1)
  1. PROMACTA [Suspect]
     Active Substance: ELTROMBOPAG OLAMINE
     Indication: Product used for unknown indication
     Dosage: UNK
     Route: 048

REACTIONS (16)
  - Insomnia [Unknown]
  - Burning sensation [Unknown]
  - Constipation [Unknown]
  - Burn oesophageal [Unknown]
  - Gait disturbance [Unknown]
  - Product dose omission issue [Unknown]
  - Asthenia [Unknown]
  - Headache [Unknown]
  - Peripheral vascular disorder [Unknown]
  - COVID-19 [Unknown]
  - Pain in extremity [Unknown]
  - Body temperature increased [Unknown]
  - Memory impairment [Unknown]
  - Disturbance in attention [Unknown]
  - Full blood count abnormal [Unknown]
  - Platelet count decreased [Unknown]
